FAERS Safety Report 19202365 (Version 2)
Quarter: 2021Q2

REPORT INFORMATION
  Report Type: Spontaneous
  Country: AU (occurrence: AU)
  Receive Date: 20210430
  Receipt Date: 20210511
  Transmission Date: 20210717
  Serious: Yes (Other)
  Sender: FDA-Public Use
  Company Number: AU-VIIV HEALTHCARE LIMITED-AU2021091605

PATIENT
  Age: 61 Year
  Sex: Male
  Weight: 70.8 kg

DRUGS (1)
  1. DOVATO [Suspect]
     Active Substance: DOLUTEGRAVIR SODIUM\LAMIVUDINE
     Indication: HIV INFECTION
     Dosage: UNK UNK, QD 50 MG/300 MG
     Route: 048
     Dates: start: 20210329, end: 20210412

REACTIONS (9)
  - Decreased appetite [Recovering/Resolving]
  - Anxiety [Recovering/Resolving]
  - Tourette^s disorder [Recovered/Resolved]
  - Weight decreased [Recovering/Resolving]
  - Musculoskeletal stiffness [Recovering/Resolving]
  - Tic [Recovering/Resolving]
  - Arthralgia [Recovering/Resolving]
  - Pain in extremity [Recovered/Resolved]
  - Insomnia [Recovering/Resolving]

NARRATIVE: CASE EVENT DATE: 20210330
